FAERS Safety Report 10097153 (Version 3)
Quarter: 2014Q3

REPORT INFORMATION
  Report Type: Spontaneous
  Country: US (occurrence: US)
  Receive Date: 20140422
  Receipt Date: 20140707
  Transmission Date: 20150326
  Serious: Yes (Death, Hospitalization, Other)
  Sender: FDA-Public Use
  Company Number: US-ABBVIE-14P-163-1227952-00

PATIENT
  Age: 79 Year
  Sex: Male
  Weight: 77.18 kg

DRUGS (10)
  1. ANDROGEL [Suspect]
     Active Substance: TESTOSTERONE
     Indication: ASTHENIA
  2. MEGESTROL ACTE [Concomitant]
     Indication: GASTRIC DISORDER
     Dosage: SUSPENSION
     Dates: end: 20130417
  3. PRAVASTATIN SODIUM. [Concomitant]
     Active Substance: PRAVASTATIN SODIUM
     Indication: PRODUCT USED FOR UNKNOWN INDICATION
  4. BENAZEPRIL HCL [Concomitant]
     Active Substance: BENAZEPRIL HYDROCHLORIDE
     Indication: PRODUCT USED FOR UNKNOWN INDICATION
     Dates: end: 20130417
  5. CLOPIDOGREL [Concomitant]
     Active Substance: CLOPIDOGREL BISULFATE
     Indication: PRODUCT USED FOR UNKNOWN INDICATION
     Dates: end: 20130417
  6. ANDROGEL [Suspect]
     Active Substance: TESTOSTERONE
     Indication: BLOOD TESTOSTERONE DECREASED
     Dosage: PACKETS, DOSE WAS UNKNOWN
     Route: 061
     Dates: start: 20111109, end: 20111114
  7. AMLODIPINE BESYLATE. [Concomitant]
     Active Substance: AMLODIPINE BESYLATE
     Indication: PRODUCT USED FOR UNKNOWN INDICATION
     Dates: end: 20130417
  8. TAMSULOSIN HCL [Concomitant]
     Active Substance: TAMSULOSIN
     Indication: PRODUCT USED FOR UNKNOWN INDICATION
     Dates: end: 20130417
  9. ANDROGEL [Suspect]
     Active Substance: TESTOSTERONE
     Indication: MUSCULAR WEAKNESS
     Dosage: PACKETS, DOSE WAS UNKNOWN
     Route: 061
     Dates: start: 20111005, end: 20111008
  10. PANTOPRAZOLE SODIUM DR [Concomitant]
     Active Substance: PANTOPRAZOLE SODIUM
     Indication: PRODUCT USED FOR UNKNOWN INDICATION
     Dates: end: 20130417

REACTIONS (17)
  - Violence-related symptom [Recovered/Resolved]
  - Cerebrovascular accident [Unknown]
  - Asthenia [Unknown]
  - Asthenia [Fatal]
  - Speech disorder [Recovered/Resolved]
  - Transient ischaemic attack [Not Recovered/Not Resolved]
  - Agitation [Recovered/Resolved]
  - Dysuria [Unknown]
  - Insomnia [Recovered/Resolved]
  - Tachyphrenia [Recovered/Resolved]
  - Aggression [Recovered/Resolved]
  - Aggression [Recovered/Resolved]
  - Nervousness [Recovered/Resolved]
  - Paranoia [Unknown]
  - Aggression [Recovered/Resolved]
  - Memory impairment [Unknown]
  - Disturbance in attention [Not Recovered/Not Resolved]

NARRATIVE: CASE EVENT DATE: 201110
